FAERS Safety Report 12433421 (Version 1)
Quarter: 2016Q2

REPORT INFORMATION
  Report Type: Spontaneous
  Country: US (occurrence: US)
  Receive Date: 20160603
  Receipt Date: 20160603
  Transmission Date: 20160815
  Serious: No
  Sender: FDA-Public Use
  Company Number: US-B.I. PHARMACEUTICALS,INC./RIDGEFIELD-2016-BI-32804BP

PATIENT
  Age: 64 Year
  Sex: Female

DRUGS (15)
  1. BETHANECHOL [Concomitant]
     Active Substance: BETHANECHOL
     Indication: AUTOMATIC BLADDER
     Dosage: 25 MG
     Route: 048
     Dates: start: 2006
  2. NEXIUM [Concomitant]
     Active Substance: ESOMEPRAZOLE MAGNESIUM
     Indication: GASTROINTESTINAL DISORDER
     Dosage: 40 MG
     Route: 048
     Dates: start: 2006
  3. ATENOLOL. [Concomitant]
     Active Substance: ATENOLOL
     Indication: HYPERTENSION
     Dosage: 50 MG
     Route: 048
     Dates: start: 2000
  4. ZOLPIDEM TARTATE [Concomitant]
     Active Substance: ZOLPIDEM TARTRATE
     Indication: INSOMNIA
     Dosage: 10 MG
     Route: 048
     Dates: start: 2004
  5. PERDIEM [Concomitant]
     Active Substance: SENNOSIDES
     Indication: CONSTIPATION
     Dosage: 2 ANZ
     Route: 065
     Dates: start: 1996
  6. VITAMIN D2 [Concomitant]
     Active Substance: ERGOCALCIFEROL
     Indication: VITAMIN D DEFICIENCY
     Dosage: 0.1786 MG
     Route: 048
     Dates: start: 2008
  7. SAME [Concomitant]
     Indication: DEPRESSION
     Dosage: 800 MG
     Route: 065
     Dates: start: 201506
  8. GILOTRIF [Suspect]
     Active Substance: AFATINIB
     Indication: LUNG NEOPLASM MALIGNANT
     Dosage: 40 MG
     Route: 048
     Dates: start: 20141203, end: 20150501
  9. GILOTRIF [Suspect]
     Active Substance: AFATINIB
     Dosage: 30 MG
     Route: 048
     Dates: start: 20150501, end: 20150709
  10. GILOTRIF [Suspect]
     Active Substance: AFATINIB
     Dosage: 30 MG
     Route: 048
     Dates: start: 20150729, end: 20151107
  11. ECHINACEA WITH GOLDEN SEAL [Concomitant]
     Indication: IMMUNE SYSTEM DISORDER
     Dosage: 400 MG
     Route: 065
     Dates: start: 201512
  12. GILOTRIF [Suspect]
     Active Substance: AFATINIB
     Dosage: 20 MG
     Route: 048
     Dates: start: 20151107
  13. BIOTIN [Concomitant]
     Active Substance: BIOTIN
     Indication: MENOPAUSE
     Dosage: 10000 MCG
     Route: 065
     Dates: start: 2003
  14. VITAMIN C [Concomitant]
     Active Substance: ASCORBIC ACID
     Indication: IMMUNE SYSTEM DISORDER
     Dosage: 2000 MG
     Route: 065
     Dates: start: 2003
  15. VITAMIN B COMPLEX [Concomitant]
     Active Substance: CYANOCOBALAMIN\DEXPANTHENOL\NIACINAMIDE\PYRIDOXINE HYDROCHLORIDE\RIBOFLAVIN 5^-PHOSPHATE SODIUM\THIAMINE HYDROCHLORIDE\VITAMIN B COMPLEX
     Indication: SUPPLEMENTATION THERAPY
     Dosage: 200 MG
     Route: 065
     Dates: start: 2011

REACTIONS (10)
  - Diarrhoea [Not Recovered/Not Resolved]
  - Rhinorrhoea [Not Recovered/Not Resolved]
  - Nasal dryness [Not Recovered/Not Resolved]
  - Fatigue [Recovered/Resolved]
  - Ingrowing nail [Not Recovered/Not Resolved]
  - Epistaxis [Recovered/Resolved]
  - Hot flush [Not Recovered/Not Resolved]
  - Nail disorder [Not Recovered/Not Resolved]
  - Nail infection [Not Recovered/Not Resolved]
  - Eye discharge [Not Recovered/Not Resolved]

NARRATIVE: CASE EVENT DATE: 201412
